FAERS Safety Report 17325945 (Version 3)
Quarter: 2021Q2

REPORT INFORMATION
  Report Type: Spontaneous
  Country: US (occurrence: US)
  Receive Date: 20200127
  Receipt Date: 20210608
  Transmission Date: 20210716
  Serious: No
  Sender: FDA-Public Use
  Company Number: US-PFIZER INC-2019424218

PATIENT
  Age: 91 Year
  Sex: Female

DRUGS (2)
  1. DETROL LA [Suspect]
     Active Substance: TOLTERODINE TARTRATE
     Indication: URINARY TRACT INFECTION
     Dosage: 4 MG, 2X/DAY (ONE TABLET BY MOUTH TWICE DAILY)
     Route: 048
  2. DETROL LA [Suspect]
     Active Substance: TOLTERODINE TARTRATE
     Indication: BODY MASS INDEX
     Dosage: 2 MG, 2X/DAY (2 MG CAPSULE TWICE DAILY)
     Route: 048
     Dates: end: 20200119

REACTIONS (2)
  - Off label use [Unknown]
  - Bladder discomfort [Unknown]
